FAERS Safety Report 9234892 (Version 2)
Quarter: 2013Q2

REPORT INFORMATION
  Report Type: Spontaneous
  Country: US (occurrence: US)
  Receive Date: 20130416
  Receipt Date: 20130416
  Transmission Date: 20140414
  Serious: No
  Sender: FDA-Public Use
  Company Number: US-BANPHARM-20120173

PATIENT
  Sex: Female

DRUGS (2)
  1. ALEVE LIQUID GELS 220 MG [Suspect]
     Indication: ARTHRALGIA
     Route: 048
     Dates: start: 201209
  2. ALEVE CAPLET/TABLET,MIDOL EXTENDED RELIEF CAPLET [Suspect]
     Indication: ARTHRALGIA
     Dosage: UNK
     Route: 048
     Dates: start: 201209

REACTIONS (1)
  - Drug effect incomplete [Not Recovered/Not Resolved]
